FAERS Safety Report 8608611-4 (Version None)
Quarter: 2012Q3

REPORT INFORMATION
  Report Type: 
  Country: None (occurrence: None)
  Receive Date: 20120821
  Receipt Date: 20120817
  Transmission Date: 20120928
  Serious: Yes (Death)
  Sender: FDA-Public Use
  Company Number: US-SHIRE-ALL1-2012-03372

PATIENT
  Age: 24 Year
  Sex: Female
  Weight: 62.132 kg

DRUGS (4)
  1. VYVANSE [Suspect]
     Dosage: UNK
     Route: 048
     Dates: start: 20110222, end: 20110801
  2. VYVANSE [Suspect]
     Indication: ATTENTION DEFICIT/HYPERACTIVITY DISORDER
     Dosage: 60 MG, 1X/DAY:QD
     Route: 048
     Dates: start: 20110801, end: 20111225
  3. ZOLOFT [Concomitant]
     Indication: DYSTHYMIC DISORDER
     Dosage: 100 MG, 1X/DAY:QD
     Route: 065
     Dates: start: 20110819
  4. TRAZODONE HYDROCHLORIDE [Concomitant]
     Indication: INSOMNIA
     Dosage: 50 MG, 1X/DAY:QD (AT BEDTIME)
     Route: 065
     Dates: start: 20110819

REACTIONS (4)
  - MITRAL VALVE PROLAPSE [None]
  - CARDIAC DEATH [None]
  - DRUG LEVEL INCREASED [None]
  - DRUG INEFFECTIVE [None]
